FAERS Safety Report 9818597 (Version 16)
Quarter: 2015Q2

REPORT INFORMATION
  Report Type: Report from Study
  Country: CA (occurrence: CA)
  Receive Date: 20140115
  Receipt Date: 20150506
  Transmission Date: 20150821
  Serious: Yes (Hospitalization, Other)
  Sender: FDA-Public Use
  Company Number: PHHY2013CA147931

PATIENT
  Age: 46 Year
  Sex: Female

DRUGS (3)
  1. SANDOSTATIN LAR DEPOT [Suspect]
     Active Substance: OCTREOTIDE ACETATE
     Indication: NEUROENDOCRINE CARCINOMA METASTATIC
     Dosage: 30 MG, EVERY 4 WEEKS
     Route: 030
     Dates: start: 20130917
  2. SANDOSTATIN LAR DEPOT [Suspect]
     Active Substance: OCTREOTIDE ACETATE
     Dosage: 40 MG, EVERY 4 WEEKS
     Route: 030
  3. SANDOSTATIN [Suspect]
     Active Substance: OCTREOTIDE ACETATE
     Indication: NEUROENDOCRINE CARCINOMA METASTATIC
     Dosage: 100 UG, TID
     Route: 058
     Dates: start: 20130903

REACTIONS (22)
  - Metastases to liver [Unknown]
  - Blood pressure increased [Unknown]
  - Generalised oedema [Unknown]
  - Paraesthesia [Unknown]
  - Cough [Unknown]
  - Localised oedema [Unknown]
  - Dyspnoea [Unknown]
  - Abdominal distension [Unknown]
  - Appendicitis perforated [Unknown]
  - Blood pressure diastolic decreased [Unknown]
  - Diarrhoea [Recovered/Resolved]
  - Asthenia [Unknown]
  - Abdominal discomfort [Unknown]
  - Pain [Unknown]
  - Feeling abnormal [Unknown]
  - Peripheral swelling [Unknown]
  - Vitamin D decreased [Unknown]
  - Gangrene [Unknown]
  - Liver disorder [Unknown]
  - Hepatic neoplasm [Unknown]
  - Gait disturbance [Unknown]
  - Injection site pain [Unknown]

NARRATIVE: CASE EVENT DATE: 20140529
